FAERS Safety Report 5807338-1 (Version None)
Quarter: 2008Q3

REPORT INFORMATION
  Report Type: 
  Country: None (occurrence: None)
  Receive Date: 20080709
  Receipt Date: 20080709
  Transmission Date: 20090109
  Serious: No
  Sender: FDA-Public Use
  Company Number: None

PATIENT
  Age: 5 Year
  Sex: Female
  Weight: 19.5047 kg

DRUGS (2)
  1. SINGULAIR [Suspect]
     Indication: ASTHMA
     Dosage: 4 MG 1 TAB QPM PO
     Route: 048
     Dates: start: 20080610, end: 20080705
  2. ALBUTEROL PRN [Concomitant]

REACTIONS (2)
  - CRYING [None]
  - IRRITABILITY [None]
